FAERS Safety Report 6128359-8 (Version None)
Quarter: 2009Q1

REPORT INFORMATION
  Report Type: 
  Country: None (occurrence: None)
  Receive Date: 20090323
  Receipt Date: 20090319
  Transmission Date: 20090719
  Serious: Yes (Other)
  Sender: FDA-Public Use
  Company Number: B0566131A

PATIENT
  Sex: Female

DRUGS (1)
  1. CARVEDILOL [Suspect]
     Indication: MYOCARDIAL INFARCTION
     Route: 065

REACTIONS (2)
  - CONJUNCTIVITIS [None]
  - DRY EYE [None]
